FAERS Safety Report 9735856 (Version 1)
Quarter: 2013Q4

REPORT INFORMATION
  Report Type: Spontaneous
  Country: US (occurrence: US)
  Receive Date: 20131206
  Receipt Date: 20131206
  Transmission Date: 20140711
  Serious: No
  Sender: FDA-Public Use
  Company Number: US-GILEAD-2009-0024075

PATIENT
  Sex: Female
  Weight: 99.79 kg

DRUGS (17)
  1. LETAIRIS [Suspect]
     Indication: PULMONARY ARTERIAL HYPERTENSION
     Route: 048
     Dates: start: 20090820
  2. LASIX [Concomitant]
  3. HYDRALAZINE [Concomitant]
  4. CARVEDILOL [Concomitant]
  5. CARDIZEM CD [Concomitant]
  6. CLONIDINE HCL [Concomitant]
  7. ALBUTEROL [Concomitant]
  8. SYMBICORT [Concomitant]
  9. SPIRIVA [Concomitant]
  10. LIPITOR [Concomitant]
  11. LANTUS [Concomitant]
  12. ZOLOFT [Concomitant]
  13. MUCINEX [Concomitant]
  14. PROTONIX [Concomitant]
  15. ASPIRIN [Concomitant]
  16. VITAMIN B12 [Concomitant]
  17. IRON [Concomitant]

REACTIONS (6)
  - Feeling abnormal [Unknown]
  - Headache [Unknown]
  - Abdominal distension [Unknown]
  - Joint swelling [Unknown]
  - Local swelling [Unknown]
  - Dyspnoea [Unknown]
